FAERS Safety Report 8896380 (Version 1)
Quarter: 2012Q4

REPORT INFORMATION
  Report Type: Spontaneous
  Country: US (occurrence: None)
  Receive Date: 20121101
  Receipt Date: 20121101
  Transmission Date: 20130627
  Serious: Yes (Other)
  Sender: FDA-Public Use
  Company Number: DKLU1085524

PATIENT
  Sex: Male

DRUGS (1)
  1. ONFI [Suspect]
     Indication: EPILEPSY

REACTIONS (1)
  - Blindness [None]
